FAERS Safety Report 9869184 (Version 2)
Quarter: 2014Q2

REPORT INFORMATION
  Report Type: Spontaneous
  Country: CA (occurrence: CA)
  Receive Date: 20140205
  Receipt Date: 20140414
  Transmission Date: 20141212
  Serious: Yes (Other)
  Sender: FDA-Public Use
  Company Number: CA-BRISTOL-MYERS SQUIBB COMPANY-20096590

PATIENT
  Age: 39 Year
  Sex: Female

DRUGS (1)
  1. ABILIFY [Suspect]
     Dosage: ABILIFY 15 MG
     Route: 048
     Dates: start: 20130501, end: 20130525

REACTIONS (1)
  - VIIth nerve paralysis [Recovered/Resolved]
